FAERS Safety Report 13931485 (Version 3)
Quarter: 2017Q4

REPORT INFORMATION
  Report Type: Report from Study
  Country: None (occurrence: US)
  Receive Date: 20170904
  Receipt Date: 20171117
  Transmission Date: 20180320
  Serious: Yes (Hospitalization, Other)
  Sender: FDA-Public Use
  Company Number: US-ABBVIE-17K-163-2085057-00

PATIENT
  Sex: Female

DRUGS (2)
  1. HUMIRA [Suspect]
     Active Substance: ADALIMUMAB
     Indication: RHEUMATOID ARTHRITIS
     Route: 058
     Dates: end: 2017
  2. HUMIRA [Suspect]
     Active Substance: ADALIMUMAB
     Route: 058
     Dates: start: 201710

REACTIONS (14)
  - Calcium metabolism disorder [Unknown]
  - Intestinal obstruction [Recovered/Resolved]
  - Diverticulitis [Unknown]
  - Electrolyte imbalance [Not Recovered/Not Resolved]
  - Malabsorption [Unknown]
  - Blood potassium decreased [Recovering/Resolving]
  - Arthropathy [Not Recovered/Not Resolved]
  - Pneumonia [Recovered/Resolved]
  - Blood magnesium decreased [Recovering/Resolving]
  - Chest pain [Unknown]
  - Chronic obstructive pulmonary disease [Not Recovered/Not Resolved]
  - Hypocalcaemia [Recovering/Resolving]
  - Magnesium metabolism disorder [Unknown]
  - Cardiac disorder [Not Recovered/Not Resolved]

NARRATIVE: CASE EVENT DATE: 2016
